FAERS Safety Report 10075478 (Version 2)
Quarter: 2014Q2

REPORT INFORMATION
  Report Type: Spontaneous
  Country: CA (occurrence: CA)
  Receive Date: 20140414
  Receipt Date: 20140414
  Transmission Date: 20141212
  Serious: Yes (Hospitalization, Other)
  Sender: FDA-Public Use
  Company Number: CA-ROCHE-GNE300254

PATIENT
  Age: 40 Year
  Sex: Male
  Weight: 113.52 kg

DRUGS (6)
  1. XOLAIR [Suspect]
     Indication: ASTHMA
     Dosage: 300 MG, 1/MONTH
     Route: 058
     Dates: start: 20070216
  2. XOLAIR [Suspect]
     Dosage: 300 MG, 1/MONTH
     Route: 058
     Dates: start: 20090619
  3. XOLAIR [Suspect]
     Dosage: UNK
     Route: 058
  4. XOLAIR [Suspect]
     Dosage: 300 MG, Q2W
     Route: 058
     Dates: start: 20091106
  5. XOLAIR [Suspect]
     Dosage: 300 MG, 1/MONTH
     Route: 058
     Dates: start: 20100326
  6. ACETAMINOPHEN [Concomitant]
     Indication: PRODUCT USED FOR UNKNOWN INDICATION

REACTIONS (9)
  - Hypersensitivity [Unknown]
  - Pyrexia [Unknown]
  - Rhinitis allergic [Unknown]
  - Fatigue [Unknown]
  - Sinusitis [Unknown]
  - Pain in extremity [Unknown]
  - Toxicity to various agents [Unknown]
  - Oropharyngeal pain [Unknown]
  - Cough [Unknown]
